FAERS Safety Report 8604502 (Version 3)
Quarter: 2013Q3

REPORT INFORMATION
  Report Type: Report from Study
  Country: CA (occurrence: CA)
  Receive Date: 20120608
  Receipt Date: 20130716
  Transmission Date: 20140515
  Serious: Yes (Other)
  Sender: FDA-Public Use
  Company Number: PHHY2011CA67378

PATIENT
  Age: 64 Year
  Sex: Female

DRUGS (9)
  1. ACLASTA [Suspect]
     Indication: OSTEOPOROSIS
     Dosage: 5 MG / 100 ML
     Route: 042
     Dates: start: 20090601
  2. ACLASTA [Suspect]
     Dosage: 5 MG / 100 ML
     Route: 042
     Dates: start: 20100628
  3. ACLASTA [Suspect]
     Dosage: 5 MG / 100 ML
     Route: 042
     Dates: start: 20110727
  4. ACLASTA [Suspect]
     Dosage: 5 MG / 100 ML
     Route: 042
     Dates: start: 20120730
  5. AVALIDE [Concomitant]
  6. CALCIUM [Concomitant]
  7. LIPITOR [Concomitant]
  8. SPIRIVA [Concomitant]
  9. SYNTHROID [Concomitant]

REACTIONS (4)
  - Breast cancer [Unknown]
  - Vaginal polyp [Unknown]
  - Uterine polyp [Recovering/Resolving]
  - Device difficult to use [Unknown]
